FAERS Safety Report 14979557 (Version 1)
Quarter: 2018Q2

REPORT INFORMATION
  Report Type: Spontaneous
  Country: DE (occurrence: DE)
  Receive Date: 20180606
  Receipt Date: 20180606
  Transmission Date: 20180711
  Serious: Yes (Hospitalization, Other)
  Sender: FDA-Public Use
  Company Number: DE-TEVA-2018-DE-902306

PATIENT
  Age: 61 Year
  Sex: Male
  Weight: 85 kg

DRUGS (6)
  1. METOPROLOL SUCCINATE. [Concomitant]
     Active Substance: METOPROLOL SUCCINATE
     Indication: AORTIC VALVE REPLACEMENT
     Dosage: 2 X TGL.
     Route: 048
     Dates: start: 199308
  2. VITAMIN D3 [Concomitant]
     Active Substance: CHOLECALCIFEROL
     Indication: OSTEOPOROSIS
     Dosage: . TGL
     Route: 048
     Dates: start: 199308
  3. MARCUMAR [Concomitant]
     Active Substance: PHENPROCOUMON
     Indication: AORTIC VALVE REPLACEMENT
     Dosage: NACH INR
     Route: 048
     Dates: start: 199308
  4. LISINOPRIL. [Concomitant]
     Active Substance: LISINOPRIL
     Indication: AORTIC VALVE REPLACEMENT
     Dosage: 2 X TGL. 10MG
     Route: 048
     Dates: start: 199308
  5. ATORVASTATIN [Suspect]
     Active Substance: ATORVASTATIN
     Indication: MYOCARDIAL INFARCTION
     Dosage: 40 MILLIGRAM DAILY; DAILY
     Route: 048
     Dates: start: 20170830
  6. CLOPIDOGREL [Concomitant]
     Active Substance: CLOPIDOGREL BISULFATE
     Indication: MYOCARDIAL INFARCTION
     Dosage: 75 MILLIGRAM DAILY; DAILY
     Route: 048
     Dates: start: 201708

REACTIONS (1)
  - Muscle rupture [Recovered/Resolved]

NARRATIVE: CASE EVENT DATE: 201803
